FAERS Safety Report 24125147 (Version 1)
Quarter: 2024Q3

REPORT INFORMATION
  Report Type: Spontaneous
  Country: US (occurrence: US)
  Receive Date: 20240723
  Receipt Date: 20240723
  Transmission Date: 20241017
  Serious: Yes (Hospitalization)
  Sender: CIPLA
  Company Number: US-CIPLA LTD.-2024US07466

PATIENT

DRUGS (2)
  1. ALBUTEROL [Suspect]
     Active Substance: ALBUTEROL
     Indication: Product used for unknown indication
     Dosage: PREVIOUS INHALER
  2. ALBUTEROL [Suspect]
     Active Substance: ALBUTEROL
     Dosage: REFILL INHALER-1 OR 2 PUFFS EVERY 6 HOURS AS NEEDED

REACTIONS (2)
  - Illness [Unknown]
  - Device malfunction [Unknown]
